FAERS Safety Report 13584284 (Version 1)
Quarter: 2017Q2

REPORT INFORMATION
  Report Type: Spontaneous
  Country: US (occurrence: US)
  Receive Date: 20170525
  Receipt Date: 20170525
  Transmission Date: 20170830
  Serious: No
  Sender: FDA-Public Use
  Company Number: None

PATIENT
  Age: 23 Year
  Sex: Male
  Weight: 72 kg

DRUGS (1)
  1. OLD SPICE HIGH ENDURANCE DEORDOR [Suspect]
     Active Substance: COSMETICS
     Indication: PROPHYLAXIS
     Dates: start: 20170515, end: 20170525

REACTIONS (5)
  - Axillary pain [None]
  - Application site irritation [None]
  - Application site burn [None]
  - Application site erythema [None]
  - Loss of personal independence in daily activities [None]

NARRATIVE: CASE EVENT DATE: 20170524
